FAERS Safety Report 9793360 (Version 2)
Quarter: 2014Q1

REPORT INFORMATION
  Report Type: Spontaneous
  Country: US (occurrence: US)
  Receive Date: 20140102
  Receipt Date: 20140121
  Transmission Date: 20141002
  Serious: Yes (Other)
  Sender: FDA-Public Use
  Company Number: US-PFIZER INC-2013374212

PATIENT
  Age: 50 Year
  Sex: Female
  Weight: 105.22 kg

DRUGS (2)
  1. CELEBREX [Suspect]
     Indication: ARTHRITIS
     Dosage: 100 MG, 2X/DAY
     Route: 048
  2. CELEBREX [Suspect]
     Dosage: 100 MG, 1X/DAY
     Route: 048

REACTIONS (4)
  - Enterocolitis [Unknown]
  - Arthropathy [Unknown]
  - Arthritis [Unknown]
  - Gastrooesophageal reflux disease [Not Recovered/Not Resolved]
